FAERS Safety Report 23526393 (Version 1)
Quarter: 2024Q1

REPORT INFORMATION
  Report Type: Spontaneous
  Country: IT (occurrence: IT)
  Receive Date: 20240215
  Receipt Date: 20240215
  Transmission Date: 20240410
  Serious: Yes (Other)
  Sender: FDA-Public Use
  Company Number: None

PATIENT
  Age: 74 Year
  Sex: Male
  Weight: 78 kg

DRUGS (5)
  1. FLUOROURACIL [Suspect]
     Active Substance: FLUOROURACIL
     Indication: Colon cancer metastatic
     Dosage: START OF THERAPY 04/07/2023 - THERAPY EVERY 15 DAYS - 4 CYCLE
     Route: 042
     Dates: start: 20230817, end: 20230817
  2. FLUOROURACIL [Suspect]
     Active Substance: FLUOROURACIL
     Indication: Colon cancer metastatic
     Dosage: START OF THERAPY 04/07/2023 - THERAPY EVERY 15 DAYS - 4 CYCLE
     Route: 042
     Dates: start: 20230817, end: 20230817
  3. IRINOTECAN [Suspect]
     Active Substance: IRINOTECAN
     Indication: Colon cancer metastatic
     Dosage: START OF THERAPY 17/08 - IRINOTECAN STARTED ON 17/08/2023, AT THE 4TH CYCLE OF THERAPY - THERAPY ...
     Route: 042
     Dates: start: 20230817, end: 20230817
  4. LEVOLEUCOVORIN [Concomitant]
     Active Substance: LEVOLEUCOVORIN
     Indication: Product used for unknown indication
     Route: 065
  5. VECTIBIX [Suspect]
     Active Substance: PANITUMUMAB
     Indication: Colon cancer metastatic
     Dosage: START OF THERAPY 04/07/2023 - THERAPY EVERY 15 DAYS - 4 CYCLE
     Route: 042
     Dates: start: 20230817, end: 20230817

REACTIONS (2)
  - Neutropenia [Recovering/Resolving]
  - Leukopenia [Recovering/Resolving]

NARRATIVE: CASE EVENT DATE: 20230825
